FAERS Safety Report 6482604-8 (Version None)
Quarter: 2009Q4

REPORT INFORMATION
  Report Type: 
  Country: None (occurrence: None)
  Receive Date: 20091209
  Receipt Date: 20091201
  Transmission Date: 20100525
  Serious: Yes (Life-Threatening, Hospitalization)
  Sender: FDA-Public Use
  Company Number: GB-RANBAXY-2009RR-25021

PATIENT
  Age: 77 Year
  Sex: Male
  Weight: 76 kg

DRUGS (13)
  1. SIMVASTATIN [Suspect]
     Indication: CEREBROVASCULAR ACCIDENT
     Dosage: 40 MG, QD
     Route: 048
     Dates: start: 20081001, end: 20090513
  2. SIMVASTATIN [Suspect]
     Indication: MYOCARDIAL ISCHAEMIA
  3. AMIODARONE HCL [Concomitant]
     Indication: ATRIAL FIBRILLATION
     Dosage: 200 MG, QD
     Route: 048
     Dates: start: 20060801, end: 20090526
  4. AMLODIPINE [Concomitant]
     Indication: HYPERTENSION
     Dosage: 5 MG, QD
     Route: 048
  5. ASPIRIN [Concomitant]
     Indication: CEREBROVASCULAR ACCIDENT
     Dosage: 300 MG, QD
     Route: 048
     Dates: start: 20070101, end: 20090515
  6. ASPIRIN [Concomitant]
     Indication: MYOCARDIAL ISCHAEMIA
  7. AMOXICILLIN AND CLAVULANATE POTASSIUM [Concomitant]
     Dosage: 625 MG, QD
     Dates: start: 20090423
  8. GLYCERYL TRINITRATE [Concomitant]
     Dosage: UNK
     Route: 067
  9. GOSERELIN [Concomitant]
     Dosage: 10.8 MG, UNK
     Dates: end: 20090414
  10. RAMIPRIL [Concomitant]
     Dosage: 5 MG, QD
  11. SIMVASTATIN [Concomitant]
     Dosage: 20 MG, UNK
     Dates: start: 20090513, end: 20090515
  12. LEVOTHYROXINE SODIUM [Concomitant]
     Indication: HYPERTHYROIDISM
     Dosage: 50 UG, QD
     Route: 048
     Dates: start: 20030601
  13. TIMOLOL [Concomitant]
     Dosage: 1 DF, BID
     Route: 047

REACTIONS (2)
  - BLOOD CREATINE PHOSPHOKINASE INCREASED [None]
  - MUSCLE NECROSIS [None]
